FAERS Safety Report 5394751-2 (Version None)
Quarter: 2007Q3

REPORT INFORMATION
  Report Type: 
  Country: None (occurrence: None)
  Receive Date: 20070723
  Receipt Date: 20070716
  Transmission Date: 20080115
  Serious: Yes (Hospitalization)
  Sender: FDA-Public Use
  Company Number: CM-MERCK-0707USA02457

PATIENT
  Age: 40 Year
  Sex: Male
  Weight: 55 kg

DRUGS (1)
  1. STROMECTOL [Suspect]
     Route: 048
     Dates: start: 20070629, end: 20070629

REACTIONS (13)
  - ABNORMAL BEHAVIOUR [None]
  - ANOREXIA [None]
  - APHASIA [None]
  - ASTHENIA [None]
  - COMA [None]
  - DIARRHOEA [None]
  - DIZZINESS [None]
  - ENCEPHALOPATHY [None]
  - INCONTINENCE [None]
  - MYALGIA [None]
  - PAIN [None]
  - PRURITUS GENERALISED [None]
  - PYREXIA [None]
